FAERS Safety Report 9374497 (Version 2)
Quarter: 2013Q3

REPORT INFORMATION
  Report Type: Spontaneous
  Country: MX (occurrence: MX)
  Receive Date: 20130628
  Receipt Date: 20130702
  Transmission Date: 20140515
  Serious: Yes (Hospitalization)
  Sender: FDA-Public Use
  Company Number: MX-009507513-1306MEX004096

PATIENT
  Age: 24 Year
  Sex: Female
  Weight: 55 kg

DRUGS (1)
  1. IMPLANON [Suspect]
     Indication: CONTRACEPTION
     Dosage: 60-70 MCG/DAY WEEK 5-6; 35-45 MCG/DAY AT END OF 1STR YEAR; 30-40 MCG/DAY AT END OF 3RD YEAR
     Route: 059
     Dates: start: 20100107

REACTIONS (9)
  - Ovarian cystectomy [Unknown]
  - Ovarian cyst [Unknown]
  - Weight increased [Unknown]
  - Breast pain [Unknown]
  - Menstrual disorder [Recovered/Resolved]
  - Hypoaesthesia [Not Recovered/Not Resolved]
  - Device difficult to use [Not Recovered/Not Resolved]
  - Medical device complication [Not Recovered/Not Resolved]
  - Incorrect drug administration duration [Unknown]
